FAERS Safety Report 19876351 (Version 1)
Quarter: 2021Q3

REPORT INFORMATION
  Report Type: Spontaneous
  Country: IT (occurrence: IT)
  Receive Date: 20210924
  Receipt Date: 20210924
  Transmission Date: 20211014
  Serious: Yes (Other)
  Sender: FDA-Public Use
  Company Number: IT-SUN PHARMACEUTICAL INDUSTRIES LTD-2021RR-312359

PATIENT
  Age: 77 Year
  Sex: Male

DRUGS (5)
  1. BORTEZOMIB. [Suspect]
     Active Substance: BORTEZOMIB
     Indication: CUTANEOUS AMYLOIDOSIS
     Dosage: 1 MILLIGRAM/SQ. METER, WEEKLY
     Route: 058
  2. ACICLOVIR [Concomitant]
     Active Substance: ACYCLOVIR
     Indication: HERPES ZOSTER REACTIVATION
     Dosage: 200 MILLIGRAM, BID
     Route: 065
  3. LENALIDOMIDE [Suspect]
     Active Substance: LENALIDOMIDE
     Indication: CUTANEOUS AMYLOIDOSIS
     Dosage: 5 MILLIGRAM, DAILY
     Route: 065
  4. BORTEZOMIB. [Suspect]
     Active Substance: BORTEZOMIB
     Dosage: 0.7 MILLIGRAM/SQ. METER
     Route: 058
  5. DEXAMETHASONE. [Suspect]
     Active Substance: DEXAMETHASONE
     Indication: CUTANEOUS AMYLOIDOSIS
     Dosage: 10 MILLIGRAM, 2 DAYS PER WEEK

REACTIONS (1)
  - Condition aggravated [Unknown]
